FAERS Safety Report 6035825-2 (Version None)
Quarter: 2009Q1

REPORT INFORMATION
  Report Type: 
  Country: None (occurrence: None)
  Receive Date: 20090113
  Receipt Date: 20090106
  Transmission Date: 20090719
  Serious: Yes (Hospitalization)
  Sender: FDA-Public Use
  Company Number: US-BRISTOL-MYERS SQUIBB COMPANY-14461412

PATIENT
  Sex: Male

DRUGS (1)
  1. ORENCIA [Suspect]
     Dosage: TAKEN 2 WEEKS AGO.
     Dates: start: 20080101

REACTIONS (1)
  - INTESTINAL ISCHAEMIA [None]
